FAERS Safety Report 4659022-8 (Version None)
Quarter: 2005Q2

REPORT INFORMATION
  Report Type: 
  Country: None (occurrence: None)
  Receive Date: 20050511
  Receipt Date: 20050401
  Transmission Date: 20051028
  Serious: Yes (Death, Hospitalization)
  Sender: FDA-Public Use
  Company Number: FR-GLAXOSMITHKLINE-B0377226A

PATIENT
  Age: 96 Year
  Sex: Female

DRUGS (9)
  1. AUGMENTIN [Suspect]
     Indication: PNEUMONIA ASPIRATION
     Route: 048
     Dates: start: 20050304, end: 20050305
  2. CIPROFLOXACIN [Suspect]
     Indication: URINARY TRACT INFECTION
     Route: 048
     Dates: start: 20050214, end: 20050226
  3. BECONASE [Concomitant]
     Route: 065
     Dates: start: 20050201
  4. ROCEPHIN [Concomitant]
     Route: 048
     Dates: start: 20050305, end: 20050307
  5. NEXIUM [Concomitant]
     Dosage: 40MG TWICE PER DAY
     Route: 048
     Dates: start: 20050226
  6. TERCIAN [Concomitant]
     Dosage: 3UNIT PER DAY
     Route: 048
     Dates: start: 20050226, end: 20050228
  7. FLAGYL [Concomitant]
     Route: 048
     Dates: start: 20050305
  8. PRIMPERAN TAB [Concomitant]
     Route: 065
     Dates: start: 20050226
  9. POLARAMINE [Concomitant]
     Route: 065
     Dates: start: 20050226

REACTIONS (5)
  - CONDITION AGGRAVATED [None]
  - DEATH [None]
  - DERMATITIS EXFOLIATIVE [None]
  - EYELID OEDEMA [None]
  - PNEUMONIA ASPIRATION [None]
